FAERS Safety Report 5308032-6 (Version None)
Quarter: 2007Q1

REPORT INFORMATION
  Report Type: 
  Country: None (occurrence: None)
  Receive Date: 20070130
  Receipt Date: 20060106
  Transmission Date: 20070707
  Serious: No
  Sender: FDA-Public Use
  Company Number: 431100

PATIENT
  Age: 60 Year
  Sex: Female

DRUGS (7)
  1. COPEGUS [Suspect]
     Indication: HEPATITIS C VIRUS
     Dosage: 600 MG 2 PER DAY ORAL
     Route: 048
     Dates: start: 20050717, end: 20051015
  2. PEGASYS [Concomitant]
  3. DIOVAN [Concomitant]
  4. MULTIVITAMIN NOS (MULTIVITAMIN NOS) [Concomitant]
  5. ZETIA [Concomitant]
  6. FISH OIL (FISH OIL) [Concomitant]
  7. ALEVE [Concomitant]

REACTIONS (1)
  - ANAEMIA [None]
